FAERS Safety Report 22107493 (Version 2)
Quarter: 2024Q2

REPORT INFORMATION
  Report Type: Spontaneous
  Country: JP (occurrence: JP)
  Receive Date: 20230317
  Receipt Date: 20240621
  Transmission Date: 20240716
  Serious: Yes (Hospitalization)
  Sender: FDA-Public Use
  Company Number: JP-NOVOPROD-1039358

PATIENT
  Age: 28 Year
  Sex: Female
  Weight: 78 kg

DRUGS (3)
  1. LEVEMIR [Suspect]
     Active Substance: INSULIN DETEMIR
     Indication: Type 1 diabetes mellitus
     Dosage: 36 IU, QD (19-0-0-17IU)
     Route: 058
     Dates: start: 201910
  2. NOVOLIN R [Concomitant]
     Active Substance: INSULIN HUMAN
     Indication: Type 1 diabetes mellitus
     Dosage: UNK
  3. HUMALOG [Concomitant]
     Active Substance: INSULIN LISPRO
     Indication: Type 1 diabetes mellitus
     Dosage: 53 IU, QD (15-23-15IU)

REACTIONS (2)
  - COVID-19 [Unknown]
  - Blood glucose increased [Unknown]
